FAERS Safety Report 22308639 (Version 1)
Quarter: 2023Q2

REPORT INFORMATION
  Report Type: Spontaneous
  Country: PA (occurrence: PA)
  Receive Date: 20230511
  Receipt Date: 20230511
  Transmission Date: 20230722
  Serious: Yes (Other)
  Sender: FDA-Public Use
  Company Number: PA-PFIZER INC-PV202300082389

PATIENT
  Sex: Female

DRUGS (1)
  1. LORLATINIB [Suspect]
     Active Substance: LORLATINIB
     Indication: Non-small cell lung cancer metastatic
     Dosage: 100 MG, 1X/DAY
     Route: 048
     Dates: start: 2022

REACTIONS (5)
  - Pericarditis [Unknown]
  - Generalised oedema [Unknown]
  - Hyperlipidaemia [Unknown]
  - Blood pressure increased [Unknown]
  - Mood altered [Unknown]
